FAERS Safety Report 23285522 (Version 2)
Quarter: 2024Q1

REPORT INFORMATION
  Report Type: Report from Study
  Country: US (occurrence: US)
  Receive Date: 20231211
  Receipt Date: 20240201
  Transmission Date: 20240410
  Serious: Yes (Other)
  Sender: FDA-Public Use
  Company Number: US-ABBVIE-5527100

PATIENT
  Age: 51 Year
  Sex: Female

DRUGS (9)
  1. SKYRIZI [Suspect]
     Active Substance: RISANKIZUMAB-RZAA
     Indication: Crohn^s disease
     Route: 058
     Dates: start: 20230914
  2. XANAX [Concomitant]
     Active Substance: ALPRAZOLAM
     Indication: Product used for unknown indication
     Route: 048
  3. SYNTHROID [Concomitant]
     Active Substance: LEVOTHYROXINE SODIUM
     Indication: Product used for unknown indication
     Route: 048
  4. CALCIUM\MAGNESIUM [Concomitant]
     Active Substance: CALCIUM\MAGNESIUM
     Indication: Product used for unknown indication
     Dosage: 500-250 MG
     Route: 048
  5. NASALCROM [Concomitant]
     Active Substance: CROMOLYN SODIUM
     Indication: Product used for unknown indication
     Dosage: SPRAY/PUMP
     Route: 065
  6. TRINTELLIX [Concomitant]
     Active Substance: VORTIOXETINE HYDROBROMIDE
     Indication: Product used for unknown indication
     Route: 048
  7. ASPIRIN [Concomitant]
     Active Substance: ASPIRIN
     Indication: Product used for unknown indication
     Dosage: DR
     Route: 048
  8. VITAMIN D3 [Concomitant]
     Active Substance: CHOLECALCIFEROL
     Indication: Product used for unknown indication
     Route: 048
  9. GABAPENTIN [Concomitant]
     Active Substance: GABAPENTIN
     Indication: Product used for unknown indication
     Route: 048

REACTIONS (1)
  - Foot operation [Recovering/Resolving]

NARRATIVE: CASE EVENT DATE: 20231117
